FAERS Safety Report 11415389 (Version 1)
Quarter: 2015Q3

REPORT INFORMATION
  Report Type: Spontaneous
  Country: US (occurrence: US)
  Receive Date: 20150825
  Receipt Date: 20150825
  Transmission Date: 20151125
  Serious: No
  Sender: FDA-Public Use
  Company Number: US-BAYER-2015-405201

PATIENT
  Age: 21 Year
  Sex: Female

DRUGS (1)
  1. NATAZIA [Suspect]
     Active Substance: DIENOGEST\ESTRADIOL VALERATE
     Dosage: 1 DF, QD
     Route: 048
     Dates: start: 20120808

REACTIONS (1)
  - Amenorrhoea [Not Recovered/Not Resolved]

NARRATIVE: CASE EVENT DATE: 201208
